FAERS Safety Report 15722968 (Version 2)
Quarter: 2019Q1

REPORT INFORMATION
  Report Type: Spontaneous
  Country: US (occurrence: US)
  Receive Date: 20181214
  Receipt Date: 20190311
  Transmission Date: 20190417
  Serious: No
  Sender: FDA-Public Use
  Company Number: US-INCYTE CORPORATION-2018IN012477

PATIENT

DRUGS (2)
  1. JAKAFI [Suspect]
     Active Substance: RUXOLITINIB
     Dosage: 5 MG, QOD
     Route: 048
  2. JAKAFI [Suspect]
     Active Substance: RUXOLITINIB
     Indication: POLYCYTHAEMIA VERA
     Dosage: 10 MG BID EVERY OTHER DAY ALTERNATING WITH 10MG EVERY MORNING EVERY OTHER DAY
     Route: 048

REACTIONS (3)
  - Inappropriate schedule of product administration [Unknown]
  - Hypersensitivity [Unknown]
  - Acne [Unknown]
